FAERS Safety Report 13399413 (Version 1)
Quarter: 2017Q2

REPORT INFORMATION
  Report Type: Other
  Country: GB (occurrence: GB)
  Receive Date: 20170404
  Receipt Date: 20170404
  Transmission Date: 20170830
  Serious: Yes (Other)
  Sender: FDA-Public Use
  Company Number: GB-LUPIN PHARMACEUTICALS INC.-E2B_00006170

PATIENT
  Age: 40 Year
  Sex: Female
  Weight: 95.25 kg

DRUGS (2)
  1. SERTRALINE [Suspect]
     Active Substance: SERTRALINE HYDROCHLORIDE
     Indication: DEPRESSION
     Dosage: 100 MG,UNK,UNKNOWN
     Route: 048
     Dates: start: 20140806
  2. LEVOTHYROXINE. [Concomitant]
     Active Substance: LEVOTHYROXINE
     Indication: PRODUCT USED FOR UNKNOWN INDICATION
     Dosage: UNK UNK,UNK,UNKNOWN
     Route: 065

REACTIONS (2)
  - Fatigue [Not Recovered/Not Resolved]
  - Night sweats [Not Recovered/Not Resolved]

NARRATIVE: CASE EVENT DATE: 20140813
